FAERS Safety Report 5377835-4 (Version None)
Quarter: 2007Q3

REPORT INFORMATION
  Report Type: 
  Country: None (occurrence: None)
  Receive Date: 20070703
  Receipt Date: 20070622
  Transmission Date: 20080115
  Serious: Yes (Other)
  Sender: FDA-Public Use
  Company Number: US-PFIZER INC-2007052879

PATIENT
  Sex: Female
  Weight: 65.454 kg

DRUGS (18)
  1. CHANTIX [Suspect]
     Indication: SMOKING CESSATION THERAPY
  2. LISINOPRIL [Concomitant]
  3. VYTORIN [Concomitant]
  4. ISOSORBIDE DINITRATE [Concomitant]
  5. OMEPRAZOLE [Concomitant]
  6. LORAZEPAM [Concomitant]
  7. BUPROPION [Concomitant]
  8. SEROQUEL [Concomitant]
  9. LEXAPRO [Concomitant]
  10. ACETYLSALICYLIC ACID SRT [Concomitant]
  11. GLYCERYL TRINITRATE [Concomitant]
  12. FLUOCINONIDE [Concomitant]
  13. REQUIP [Concomitant]
  14. TOPROL-XL [Concomitant]
  15. PLAVIX [Concomitant]
  16. LAMICTAL [Concomitant]
  17. ZELNORM [Concomitant]
  18. PROTONIX [Concomitant]

REACTIONS (3)
  - BIPOLAR DISORDER [None]
  - CONSTIPATION [None]
  - DEPRESSION [None]
